FAERS Safety Report 9640071 (Version 1)
Quarter: 2013Q4

REPORT INFORMATION
  Report Type: Spontaneous
  Country: AU (occurrence: AU)
  Receive Date: 20131023
  Receipt Date: 20131023
  Transmission Date: 20140711
  Serious: Yes (Other)
  Sender: FDA-Public Use
  Company Number: PHHY2013AU118865

PATIENT
  Sex: Female

DRUGS (12)
  1. ZOLEDRONATE [Suspect]
     Dosage: UNK UKN, UNK
  2. DIPROSONE [Concomitant]
     Dosage: UNK UKN, UNK
  3. CETIRIZINE HYDROCHLORIDE [Concomitant]
     Dosage: UNK UKN, UNK
  4. DENOSUMAB [Concomitant]
     Dosage: UNK UKN, UNK
  5. DOCUSATE SODIUM\SENNOSIDES [Concomitant]
     Dosage: UNK UKN, UNK
  6. FRUSEMIDE [Concomitant]
     Dosage: UNK UKN, UNK
  7. LACTULOSE [Concomitant]
     Dosage: UNK UKN, UNK
  8. PANTOPRAZOLE [Concomitant]
     Dosage: UNK UKN, UNK
  9. PARACETAMOL [Concomitant]
     Dosage: UNK UKN, UNK
  10. PREDNISOLONE [Concomitant]
     Dosage: UNK UKN, UNK
  11. TIOTROPIUM [Concomitant]
     Dosage: UNK UKN, UNK
  12. SERETIDE [Concomitant]
     Dosage: UNK UKN, UNK

REACTIONS (1)
  - Osteonecrosis of jaw [Unknown]
